FAERS Safety Report 8448858-3 (Version None)
Quarter: 2012Q2

REPORT INFORMATION
  Report Type: 
  Country: None (occurrence: None)
  Receive Date: 20120619
  Receipt Date: 20120607
  Transmission Date: 20120825
  Serious: No
  Sender: FDA-Public Use
  Company Number: US-ASTRAZENECA-2012SE38568

PATIENT
  Age: 80 Year
  Sex: Male
  Weight: 65.8 kg

DRUGS (12)
  1. SANCTURA [Concomitant]
  2. TRAMADOL HCL [Concomitant]
     Indication: PAIN
  3. FINASTERIDE [Concomitant]
  4. SYMBICORT [Suspect]
     Indication: ASTHMA
     Dosage: 160/4.5, BID
     Route: 055
  5. TRAZODONE HCL [Concomitant]
  6. OMEPRAZOLE [Suspect]
     Route: 048
  7. COUMADIN [Concomitant]
  8. PATANOL [Concomitant]
  9. TAMSULOSIN HCL [Concomitant]
  10. CLARITIN [Concomitant]
  11. GABAPENTIN [Concomitant]
  12. PRIMIDONE [Concomitant]

REACTIONS (1)
  - DYSPHONIA [None]
